FAERS Safety Report 8296782-1 (Version None)
Quarter: 2012Q2

REPORT INFORMATION
  Report Type: 
  Country: None (occurrence: None)
  Receive Date: 20120419
  Receipt Date: 20120410
  Transmission Date: 20120825
  Serious: Yes (Hospitalization, Disabling)
  Sender: FDA-Public Use
  Company Number: CA-AMGEN-CANSP2012022796

PATIENT
  Age: 2 Year
  Sex: Male
  Weight: 12 kg

DRUGS (8)
  1. NPLATE [Suspect]
     Indication: PRODUCT USED FOR UNKNOWN INDICATION
     Dosage: 60 MUG, QWK
     Route: 058
  2. GRAVOL TAB [Concomitant]
     Route: 048
  3. PREDNISONE TAB [Concomitant]
     Route: 065
  4. PANTOPRAZOLE SODIUM [Concomitant]
     Route: 042
  5. ONDANSETRON [Concomitant]
     Route: 042
  6. TRANEXAMIC ACID [Concomitant]
     Route: 042
  7. CODEINE SULFATE [Concomitant]
     Route: 048
  8. FLUCONAZOLE [Concomitant]
     Route: 065

REACTIONS (3)
  - MUSCULAR WEAKNESS [None]
  - AREFLEXIA [None]
  - POLYNEUROPATHY [None]
